FAERS Safety Report 25115821 (Version 2)
Quarter: 2025Q2

REPORT INFORMATION
  Report Type: Spontaneous
  Country: US (occurrence: US)
  Receive Date: 20250325
  Receipt Date: 20250512
  Transmission Date: 20250716
  Serious: No
  Sender: ROCHE
  Company Number: US-ROCHE-10000237472

PATIENT
  Age: 54 Year
  Sex: Female
  Weight: 87.54 kg

DRUGS (9)
  1. XOLAIR PFS [Suspect]
     Active Substance: OMALIZUMAB
     Indication: Idiopathic urticaria
     Dosage: STRENGTH: 150MG/ML?EVERY 28 DAYS
     Route: 058
     Dates: start: 20190314
  2. XOLAIR PFS [Suspect]
     Active Substance: OMALIZUMAB
  3. TECFIDERA [Concomitant]
     Active Substance: DIMETHYL FUMARATE
  4. ALLEGRA [Concomitant]
     Active Substance: FEXOFENADINE HYDROCHLORIDE
  5. BENADRYL [Concomitant]
     Active Substance: DIPHENHYDRAMINE HYDROCHLORIDE
  6. VALTREX [Concomitant]
     Active Substance: VALACYCLOVIR HYDROCHLORIDE
  7. NAPROXEN [Concomitant]
     Active Substance: NAPROXEN
  8. FLONASE [Concomitant]
     Active Substance: FLUTICASONE PROPIONATE
  9. ASTELIN [Concomitant]
     Active Substance: AZELASTINE HYDROCHLORIDE

REACTIONS (2)
  - Flushing [Unknown]
  - Vision blurred [Unknown]
